FAERS Safety Report 7558712-7 (Version None)
Quarter: 2011Q2

REPORT INFORMATION
  Report Type: 
  Country: None (occurrence: None)
  Receive Date: 20110621
  Receipt Date: 20110613
  Transmission Date: 20111010
  Serious: No
  Sender: FDA-Public Use
  Company Number: US-BIOGENIDEC-2011BI021845

PATIENT
  Sex: Female

DRUGS (5)
  1. TYSABRI [Suspect]
     Indication: MULTIPLE SCLEROSIS
     Route: 042
     Dates: start: 20091118
  2. FLUID PILLS [Concomitant]
  3. PILLS FOR HEART (NOS) [Concomitant]
  4. TYSABRI [Suspect]
     Route: 042
     Dates: start: 20090325, end: 20090624
  5. PILLS FOR BLOOD (NOS) [Concomitant]

REACTIONS (6)
  - WEIGHT INCREASED [None]
  - OEDEMA PERIPHERAL [None]
  - RENAL DISORDER [None]
  - MUSCULOSKELETAL PAIN [None]
  - GASTRIC DISORDER [None]
  - FACE OEDEMA [None]
